FAERS Safety Report 5684169-7 (Version None)
Quarter: 2008Q1

REPORT INFORMATION
  Report Type: 
  Country: None (occurrence: None)
  Receive Date: 20080328
  Receipt Date: 20070924
  Transmission Date: 20080703
  Serious: No
  Sender: FDA-Public Use
  Company Number: US-AMGEN-KDL244641

PATIENT
  Sex: Female

DRUGS (1)
  1. NEULASTA [Suspect]
     Indication: CHEMOTHERAPY
     Dates: start: 20070919

REACTIONS (4)
  - EYE SWELLING [None]
  - JUGULAR VEIN THROMBOSIS [None]
  - MUSCULOSKELETAL PAIN [None]
  - PHARYNGOLARYNGEAL PAIN [None]
